FAERS Safety Report 10176812 (Version 1)
Quarter: 2014Q2

REPORT INFORMATION
  Report Type: Spontaneous
  Country: IN (occurrence: None)
  Receive Date: 20140515
  Receipt Date: 20140515
  Transmission Date: 20141212
  Serious: Yes (Disabling)
  Sender: FDA-Public Use
  Company Number: None

PATIENT
  Age: 3 Year
  Sex: Female
  Weight: 13 kg

DRUGS (1)
  1. DOLO 650 (ACETAMINOPHEN) 650 MG MICRO LABS LTD (B+B) [Suspect]
     Indication: ACCIDENTAL EXPOSURE TO PRODUCT BY CHILD
     Dosage: 1 PILL, 650 MG ONCE DAILY TAKEN BY MOUTH
     Route: 048
     Dates: start: 20140131, end: 20140131

REACTIONS (3)
  - Accidental exposure to product by child [None]
  - Nephrotic syndrome [None]
  - Glomerulonephritis minimal lesion [None]
